FAERS Safety Report 11694026 (Version 2)
Quarter: 2015Q4

REPORT INFORMATION
  Report Type: Spontaneous
  Country: TW (occurrence: TW)
  Receive Date: 20151103
  Receipt Date: 20151201
  Transmission Date: 20160304
  Serious: Yes (Death, Hospitalization, Other)
  Sender: FDA-Public Use
  Company Number: TW-HQ SPECIALTY-TW-2015INT000597

PATIENT
  Age: 52 Year
  Sex: Male

DRUGS (5)
  1. 5-FLUOROURACIL                     /00098801/ [Suspect]
     Active Substance: FLUOROURACIL
  2. CISPLATIN. [Suspect]
     Active Substance: CISPLATIN
     Indication: OESOPHAGEAL SQUAMOUS CELL CARCINOMA STAGE III
     Dosage: 30 MG/M2, WEEKLY FOR SIX WEEKS
     Dates: end: 20140314
  3. CISPLATIN. [Suspect]
     Active Substance: CISPLATIN
  4. RADIOTHERAPY [Suspect]
     Active Substance: RADIATION THERAPY
     Indication: OESOPHAGEAL SQUAMOUS CELL CARCINOMA STAGE III
     Dosage: 50.4 GY IN 28 FRACTIONS FOR 6 WEEKS
     Dates: end: 20140314
  5. 5-FLUOROURACIL                     /00098801/ [Suspect]
     Active Substance: FLUOROURACIL
     Indication: OESOPHAGEAL SQUAMOUS CELL CARCINOMA STAGE III
     Dosage: 500 MG/M2, FOR 6 WEEKS
     Dates: end: 20140314

REACTIONS (9)
  - Vascular pseudoaneurysm [Unknown]
  - Cough [Unknown]
  - Haematemesis [Unknown]
  - Aorto-oesophageal fistula [Unknown]
  - Septic shock [Unknown]
  - Chest pain [Unknown]
  - Pneumonia [Unknown]
  - Respiratory failure [Unknown]
  - Haemorrhage [Unknown]

NARRATIVE: CASE EVENT DATE: 201404
